FAERS Safety Report 11174617 (Version 1)
Quarter: 2015Q2

REPORT INFORMATION
  Report Type: Spontaneous
  Country: MX (occurrence: None)
  Receive Date: 20150605
  Receipt Date: 20150605
  Transmission Date: 20150821
  Serious: Yes (Life-Threatening, Hospitalization, Disabling)
  Sender: FDA-Public Use
  Company Number: MX-2015-1206

PATIENT
  Age: 57 Year
  Sex: Female

DRUGS (1)
  1. NAVELBINE [Suspect]
     Active Substance: VINORELBINE TARTRATE
     Indication: BREAST CANCER METASTATIC
     Dosage: (SUBSEQUENT DOSE 8 MG/M2)
     Route: 048
     Dates: start: 201409, end: 201412

REACTIONS (3)
  - Neuropathy peripheral [None]
  - Palmar-plantar erythrodysaesthesia syndrome [None]
  - Neutropenia [None]

NARRATIVE: CASE EVENT DATE: 201412
